FAERS Safety Report 5591806-4 (Version None)
Quarter: 2008Q1

REPORT INFORMATION
  Report Type: 
  Country: None (occurrence: None)
  Receive Date: 20080115
  Receipt Date: 20080103
  Transmission Date: 20080703
  Serious: Yes (Other)
  Sender: FDA-Public Use
  Company Number: B0361211A

PATIENT
  Age: 62 Year
  Sex: Male

DRUGS (2)
  1. PAROXETINE HYDROCHLORIDE [Suspect]
     Route: 065
     Dates: start: 19960430
  2. VENLAFAXINE HCL [Concomitant]
     Route: 065

REACTIONS (17)
  - AGITATION [None]
  - ANXIETY [None]
  - CONSTIPATION [None]
  - CRYING [None]
  - DEPRESSION [None]
  - DRUG WITHDRAWAL SYNDROME [None]
  - DYSKINESIA [None]
  - DYSPEPSIA [None]
  - EMOTIONAL DISTRESS [None]
  - HYPERHIDROSIS [None]
  - HYPERVENTILATION [None]
  - INSOMNIA [None]
  - MUSCLE TWITCHING [None]
  - PANIC ATTACK [None]
  - SELF-INJURIOUS IDEATION [None]
  - SUICIDAL IDEATION [None]
  - TREMOR [None]
